FAERS Safety Report 4563035-4 (Version None)
Quarter: 2005Q1

REPORT INFORMATION
  Report Type: 
  Country: None (occurrence: None)
  Receive Date: 20050126
  Receipt Date: 20050120
  Transmission Date: 20050727
  Serious: Yes (Death)
  Sender: FDA-Public Use
  Company Number: 04-11-1659

PATIENT
  Age: 46 Year
  Sex: Female

DRUGS (3)
  1. CLOZAPINE [Suspect]
     Indication: SCHIZOPHRENIA
     Dosage: 300 MG QD ORAL
     Route: 048
     Dates: start: 20010629, end: 20041101
  2. CELEXA [Concomitant]
  3. LITHIUM CARBONATE [Concomitant]

REACTIONS (2)
  - ASTHMA [None]
  - CARDIAC FAILURE CONGESTIVE [None]
